FAERS Safety Report 23968063 (Version 1)
Quarter: 2024Q2

REPORT INFORMATION
  Report Type: Spontaneous
  Country: US (occurrence: US)
  Receive Date: 20240612
  Receipt Date: 20240612
  Transmission Date: 20240715
  Serious: No
  Sender: FDA-Public Use
  Company Number: US-PERRIGO-23US006793

PATIENT
  Age: 77 Year
  Sex: Male
  Weight: 68.027 kg

DRUGS (2)
  1. DICLOFENAC SODIUM [Suspect]
     Active Substance: DICLOFENAC\DICLOFENAC SODIUM
     Indication: Arthralgia
     Dosage: 4 G, TWO TO THREE TIMES DAILY
     Route: 061
     Dates: start: 20230405, end: 20230419
  2. ASPERCREME ARTHRITIS [Concomitant]
     Active Substance: DICLOFENAC SODIUM
     Indication: Arthritis
     Dosage: UNK
     Route: 065

REACTIONS (2)
  - Drug ineffective [Unknown]
  - Inappropriate schedule of product administration [Recovered/Resolved]

NARRATIVE: CASE EVENT DATE: 20230405
